FAERS Safety Report 19072115 (Version 2)
Quarter: 2021Q2

REPORT INFORMATION
  Report Type: Report from Study
  Country: CO (occurrence: CO)
  Receive Date: 20210330
  Receipt Date: 20210427
  Transmission Date: 20210717
  Serious: Yes (Other)
  Sender: FDA-Public Use
  Company Number: CO-AUROBINDO-AUR-APL-2021-008401

PATIENT
  Age: 29 Year
  Sex: Male

DRUGS (1)
  1. FOLOTYN [Suspect]
     Active Substance: PRALATREXATE
     Indication: CUTANEOUS T-CELL LYMPHOMA
     Dosage: 60 MILLIGRAM, EVERY WEEK
     Route: 042
     Dates: start: 20201127

REACTIONS (1)
  - Cyst [Unknown]

NARRATIVE: CASE EVENT DATE: 20210212
